FAERS Safety Report 7356656-7 (Version None)
Quarter: 2011Q1

REPORT INFORMATION
  Report Type: 
  Country: None (occurrence: None)
  Receive Date: 20110316
  Receipt Date: 20110309
  Transmission Date: 20110831
  Serious: Yes (Death)
  Sender: FDA-Public Use
  Company Number: PHHY2010JP46530

PATIENT
  Age: 48 Year
  Sex: Male

DRUGS (4)
  1. CYCLOSPORINE [Suspect]
     Indication: STEM CELL TRANSPLANT
  2. PREDNISOLONE [Concomitant]
     Indication: ANGIOIMMUNOBLASTIC T-CELL LYMPHOMA
     Dosage: 10 MG/DAY
     Route: 048
     Dates: start: 20090101
  3. CYCLOSPORINE [Suspect]
     Indication: ANGIOIMMUNOBLASTIC T-CELL LYMPHOMA
     Dosage: 150 MG, UNK
     Route: 048
     Dates: start: 20090101
  4. PREDNISOLONE [Concomitant]
     Dosage: 30 MG/DAY

REACTIONS (9)
  - HISTIOCYTOSIS HAEMATOPHAGIC [None]
  - BACTERIAL INFECTION [None]
  - RESPIRATORY DISORDER [None]
  - PULMONARY ALVEOLAR HAEMORRHAGE [None]
  - EFFUSION [None]
  - ANGINA PECTORIS [None]
  - LUNG DISORDER [None]
  - CYTOMEGALOVIRUS INFECTION [None]
  - RESPIRATORY FAILURE [None]
